FAERS Safety Report 5512328-2 (Version None)
Quarter: 2007Q4

REPORT INFORMATION
  Report Type: 
  Country: None (occurrence: None)
  Receive Date: 20071107
  Receipt Date: 20071025
  Transmission Date: 20080405
  Serious: Yes (Hospitalization)
  Sender: FDA-Public Use
  Company Number: 2007S1000145

PATIENT
  Age: 49 Year
  Sex: Male

DRUGS (3)
  1. SORIATANE [Suspect]
     Indication: DRUG USE FOR UNKNOWN INDICATION
     Dosage: 25 MG BID PO
     Route: 048
     Dates: start: 19960101
  2. TIGASON /00530101/ (ETRETINATE) [Suspect]
     Indication: PSORIASIS
     Dosage: PO
     Route: 048
     Dates: start: 19840101
  3. METHOTREXATE [Concomitant]

REACTIONS (5)
  - BLOOD TRIGLYCERIDES INCREASED [None]
  - CONDITION AGGRAVATED [None]
  - DERMATITIS EXFOLIATIVE [None]
  - EAR INFECTION [None]
  - HYPERCHOLESTEROLAEMIA [None]
